FAERS Safety Report 5860523-5 (Version None)
Quarter: 2008Q3

REPORT INFORMATION
  Report Type: 
  Country: None (occurrence: None)
  Receive Date: 20080827
  Receipt Date: 20080122
  Transmission Date: 20090109
  Serious: No
  Sender: FDA-Public Use
  Company Number: US-ABBOTT-07P-163-0420036-00

PATIENT
  Sex: Male
  Weight: 91 kg

DRUGS (4)
  1. NIASPAN [Suspect]
     Indication: BLOOD TRIGLYCERIDES
     Route: 048
     Dates: start: 20060101
  2. NIASPAN [Suspect]
     Route: 048
     Dates: end: 20070901
  3. NIASPAN [Suspect]
     Route: 048
     Dates: start: 20071008
  4. ACETYLSALICYLIC ACID SRT [Concomitant]
     Indication: DRUG USE FOR UNKNOWN INDICATION
     Route: 048

REACTIONS (2)
  - BLOOD TRIGLYCERIDES INCREASED [None]
  - FLUSHING [None]
